FAERS Safety Report 4589451-2 (Version None)
Quarter: 2005Q1

REPORT INFORMATION
  Report Type: 
  Country: None (occurrence: None)
  Receive Date: 20050216
  Receipt Date: 20050209
  Transmission Date: 20050727
  Serious: Yes (Hospitalization)
  Sender: FDA-Public Use
  Company Number: 2005UW02303

PATIENT
  Age: 46 Year
  Sex: Female

DRUGS (1)
  1. TOPROL-XL [Suspect]

REACTIONS (1)
  - STEVENS-JOHNSON SYNDROME [None]
